FAERS Safety Report 12230842 (Version 1)
Quarter: 2016Q2

REPORT INFORMATION
  Report Type: Spontaneous
  Country: JP (occurrence: JP)
  Receive Date: 20160401
  Receipt Date: 20160401
  Transmission Date: 20160815
  Serious: Yes (Death)
  Sender: FDA-Public Use
  Company Number: JP-MALLINCKRODT-T201501021

PATIENT
  Age: 61 Year
  Sex: Female
  Weight: 51 kg

DRUGS (41)
  1. OXYCONTIN [Concomitant]
     Active Substance: OXYCODONE HYDROCHLORIDE
     Dosage: 200 MG, UNK
     Route: 048
     Dates: start: 20140724, end: 20140819
  2. OXYCONTIN [Concomitant]
     Active Substance: OXYCODONE HYDROCHLORIDE
     Dosage: 240 MG, UNK
     Route: 048
     Dates: start: 20140820, end: 20140903
  3. SULBACILLIN [Concomitant]
     Active Substance: AMPICILLIN SODIUM\SULBACTAM SODIUM
     Dosage: 1.5 G
     Route: 051
     Dates: start: 20141107, end: 20141112
  4. ONETAXOTERE [Concomitant]
     Active Substance: DOCETAXEL
     Dosage: 60 MG, UNK
     Route: 051
     Dates: start: 20140709, end: 20140709
  5. RANITIDINE. [Concomitant]
     Active Substance: RANITIDINE
     Dosage: 50 MG
     Route: 051
     Dates: start: 20150115, end: 20150115
  6. MORPHINE HYDROCHLORIDE [Concomitant]
     Active Substance: MORPHINE HYDROCHLORIDE
     Dosage: 40 MG, PRN
     Route: 048
     Dates: start: 20140514
  7. ZYPREXA [Concomitant]
     Active Substance: OLANZAPINE
     Dosage: 2.5 MG, UNK
     Route: 048
     Dates: end: 20150119
  8. PACLITAXEL. [Concomitant]
     Active Substance: PACLITAXEL
     Dosage: 188 MG
     Route: 051
     Dates: start: 20150115, end: 20150115
  9. RANITIDINE. [Concomitant]
     Active Substance: RANITIDINE
     Dosage: 50 MG
     Route: 051
     Dates: start: 20141114, end: 20141114
  10. METRONIDAZOLE. [Concomitant]
     Active Substance: METRONIDAZOLE
     Dosage: UNK
     Route: 061
     Dates: start: 20150114, end: 20150119
  11. METHADONE [Suspect]
     Active Substance: METHADONE HYDROCHLORIDE
     Dosage: 15 MG, UNK (DAILY DOSE 45 MG)
     Route: 048
     Dates: start: 20140701, end: 20140902
  12. METHADONE [Suspect]
     Active Substance: METHADONE HYDROCHLORIDE
     Dosage: 25 MG, (DAILY DOSE 75 MG)
     Route: 048
     Dates: start: 20140910, end: 20141105
  13. LANSOPRAZOLE. [Concomitant]
     Active Substance: LANSOPRAZOLE
     Dosage: 15 MG, UNK
     Route: 048
     Dates: end: 20141117
  14. OXYCONTIN [Concomitant]
     Active Substance: OXYCODONE HYDROCHLORIDE
     Dosage: 160 MG, UNK
     Route: 048
     Dates: start: 20140708, end: 20140723
  15. CALONAL [Concomitant]
     Active Substance: ACETAMINOPHEN
     Dosage: 4000 MG, UNK
     Route: 048
     Dates: end: 20150119
  16. CHLOR-TRIMETON [Concomitant]
     Active Substance: CHLORPHENIRAMINE MALEATE
     Dosage: 10 MG
     Route: 051
     Dates: start: 20150115, end: 20150115
  17. ALOXI [Concomitant]
     Active Substance: PALONOSETRON HYDROCHLORIDE
     Dosage: 0.75 MG, UNK
     Route: 051
     Dates: start: 20140709, end: 20140709
  18. CYMBALTA [Concomitant]
     Active Substance: DULOXETINE HYDROCHLORIDE
     Dosage: 20 MG, UNK
     Route: 048
     Dates: end: 20150119
  19. METHADONE [Suspect]
     Active Substance: METHADONE HYDROCHLORIDE
     Indication: CANCER PAIN
     Dosage: 10 MG, UNK (DAILY DOSE 30 MG)
     Route: 048
     Dates: start: 20140515, end: 20140630
  20. METHADONE [Suspect]
     Active Substance: METHADONE HYDROCHLORIDE
     Dosage: 30 MG, (90 MG DAILY DOSE)
     Route: 048
     Dates: start: 20141106
  21. OXINORM [Concomitant]
     Active Substance: OXYCODONE HYDROCHLORIDE
     Dosage: 20 - 50  MG, PRN
     Route: 048
     Dates: start: 20140720
  22. OXYCONTIN [Concomitant]
     Active Substance: OXYCODONE HYDROCHLORIDE
     Dosage: 240 MG, UNK
     Route: 048
     Dates: start: 20140515, end: 20140515
  23. OXYCONTIN [Concomitant]
     Active Substance: OXYCODONE HYDROCHLORIDE
     Dosage: 200 MG
     Route: 048
     Dates: start: 20140904, end: 20141107
  24. DEXAMETHASONE. [Concomitant]
     Active Substance: DEXAMETHASONE
     Dosage: 6.6 MG
     Route: 051
     Dates: start: 20141114, end: 20141114
  25. DEXAMETHASONE. [Concomitant]
     Active Substance: DEXAMETHASONE
     Dosage: 9.9 MG
     Route: 051
     Dates: start: 20150115, end: 20150115
  26. MEIACT [Concomitant]
     Active Substance: CEFDITOREN PIVOXIL
     Dosage: 300 MG, UNK
     Route: 048
     Dates: start: 20140730, end: 20140805
  27. OXYCONTIN [Concomitant]
     Active Substance: OXYCODONE HYDROCHLORIDE
     Dosage: 120 MG, UNK
     Route: 048
     Dates: start: 20140703, end: 20140707
  28. OXYCONTIN [Concomitant]
     Active Substance: OXYCODONE HYDROCHLORIDE
     Dosage: 100 MG
     Route: 048
     Dates: start: 20141114, end: 20150119
  29. GABAPEN [Concomitant]
     Active Substance: GABAPENTIN
     Dosage: 300 MG, UNK
     Route: 048
     Dates: start: 20140520, end: 20150119
  30. CHLOR-TRIMETON [Concomitant]
     Active Substance: CHLORPHENIRAMINE MALEATE
     Dosage: 10 MG
     Route: 051
     Dates: start: 20140709, end: 20140709
  31. DEXAMETHASONE. [Concomitant]
     Active Substance: DEXAMETHASONE
     Dosage: 6.6 MG
     Route: 051
     Dates: start: 20140709, end: 20140709
  32. SLOW-K [Concomitant]
     Active Substance: POTASSIUM CHLORIDE
     Dosage: 2400 MG
     Route: 048
     Dates: start: 20150115, end: 20150119
  33. METHADONE [Suspect]
     Active Substance: METHADONE HYDROCHLORIDE
     Dosage: 20 MG, (DAILY DOSE 60 MG)
     Route: 048
     Dates: start: 20140903, end: 20140909
  34. EMEND [Concomitant]
     Active Substance: APREPITANT
     Dosage: 80 MG, UNK
     Route: 048
     Dates: end: 20140516
  35. OXYCONTIN [Concomitant]
     Active Substance: OXYCODONE HYDROCHLORIDE
     Dosage: 160 MG, UNK
     Route: 048
     Dates: start: 20140516, end: 20140702
  36. SURGICEL [Concomitant]
     Active Substance: CELLULOSE, OXIDIZED
     Dosage: 1 DF, UNK
     Route: 065
     Dates: end: 20150119
  37. CADEX [Concomitant]
     Indication: APOCRINE BREAST CARCINOMA
     Dosage: UNK
     Route: 061
     Dates: start: 20140823, end: 20150119
  38. UNASYN [Concomitant]
     Active Substance: AMPICILLIN SODIUM\SULBACTAM SODIUM
     Dosage: 1125 MG, UNK
     Route: 048
     Dates: start: 20140723, end: 20140729
  39. OXYFAST [Concomitant]
     Active Substance: OXYCODONE
     Dosage: 144 MG
     Route: 051
     Dates: start: 20141108, end: 20141111
  40. OXYFAST [Concomitant]
     Active Substance: OXYCODONE
     Dosage: 96 MG
     Route: 051
     Dates: start: 20141112, end: 20141113
  41. PACLITAXEL. [Concomitant]
     Active Substance: PACLITAXEL
     Dosage: 191 MG
     Route: 051
     Dates: start: 20141114, end: 20141114

REACTIONS (2)
  - Apocrine breast carcinoma [Fatal]
  - Cellulitis [Recovered/Resolved]

NARRATIVE: CASE EVENT DATE: 20150116
